FAERS Safety Report 6758878-2 (Version None)
Quarter: 2010Q2

REPORT INFORMATION
  Report Type: 
  Country: None (occurrence: None)
  Receive Date: 20100603
  Receipt Date: 20100520
  Transmission Date: 20101027
  Serious: Yes (Hospitalization)
  Sender: FDA-Public Use
  Company Number: 2010-1307

PATIENT
  Age: 55 Year
  Sex: Female

DRUGS (1)
  1. SOMATULINE AUTOSOLUTION 60MG (LANREOTIDE AUTOGEL) (LANREOTIDE) (LANDRO [Suspect]
     Indication: RENAL CYST
     Dosage: 60 MG (60 MG)

REACTIONS (7)
  - ABDOMINAL PAIN [None]
  - ASTHENIA [None]
  - CHILLS [None]
  - DIARRHOEA [None]
  - MALAISE [None]
  - NAUSEA [None]
  - OFF LABEL USE [None]
